FAERS Safety Report 19420418 (Version 3)
Quarter: 2021Q3

REPORT INFORMATION
  Report Type: Spontaneous
  Country: GB (occurrence: GB)
  Receive Date: 20210616
  Receipt Date: 20210727
  Transmission Date: 20211014
  Serious: Yes (Other)
  Sender: FDA-Public Use
  Company Number: GB-AUROBINDO-AUR-APL-2020-014910

PATIENT
  Age: 57 Year
  Sex: Female

DRUGS (124)
  1. EXEMESTANE. [Suspect]
     Active Substance: EXEMESTANE
     Dosage: 25 MILLIGRAM, ONCE A DAY
     Route: 048
     Dates: start: 20150921
  2. TRASTUZUMAB EMTANSINE [Suspect]
     Active Substance: ADO-TRASTUZUMAB EMTANSINE
     Indication: BREAST CANCER
     Dosage: 357 MILLIGRAM, EVERY WEEK
     Route: 042
     Dates: start: 20150527
  3. TRASTUZUMAB EMTANSINE [Suspect]
     Active Substance: ADO-TRASTUZUMAB EMTANSINE
     Dosage: 1 DOSAGE FORM, EVERY WEEK(1 OT, QW (20 JUN 2017) )
     Route: 042
  4. XELODA [Suspect]
     Active Substance: CAPECITABINE
     Indication: BREAST CANCER
     Dosage: 1650 MILLIGRAM
     Route: 048
     Dates: start: 20150901, end: 20160914
  5. DEXAMETHASONE. [Concomitant]
     Active Substance: DEXAMETHASONE
     Dosage: 1 DOSAGE FORM, ONCE A DAY
     Route: 048
     Dates: start: 20150506, end: 20150717
  6. LOPERAMIDE [Concomitant]
     Active Substance: LOPERAMIDE
     Indication: PRODUCT USED FOR UNKNOWN INDICATION
     Dosage: 4 MILLIGRAM AS NEEDED
     Route: 048
     Dates: start: 20150514
  7. QUININE SULFATE. [Concomitant]
     Active Substance: QUININE SULFATE
     Indication: MUSCLE SPASMS
     Dosage: 200 MILLIGRAM
     Route: 048
     Dates: start: 20161123
  8. CODEINE [Concomitant]
     Active Substance: CODEINE
     Dosage: 1 DOSAGE FORM, ONCE A DAY
     Route: 048
     Dates: start: 20160713, end: 201607
  9. KEPPRA [Concomitant]
     Active Substance: LEVETIRACETAM
     Dosage: UNK UNK, ONCE A DAY
     Route: 048
     Dates: start: 20160811, end: 20161027
  10. EXEMESTANE. [Suspect]
     Active Substance: EXEMESTANE
     Dosage: 1 DOSAGE FORM, ONCE A DAY(1 DOSAGE FORM, QD )
     Route: 048
     Dates: start: 201607
  11. PERJETA [Suspect]
     Active Substance: PERTUZUMAB
     Indication: BREAST CANCER
     Dosage: 2520 MILLIGRAM,7 DAYS(LOADING DOSE )
     Route: 042
     Dates: start: 20150507
  12. PERJETA [Suspect]
     Active Substance: PERTUZUMAB
     Dosage: 420 MG, EVERY 3 WEEKS
     Route: 042
     Dates: start: 20150527
  13. TAXOTERE [Suspect]
     Active Substance: DOCETAXEL
     Dosage: 100 MILLIGRAM, ONCE A DAY
     Route: 048
     Dates: start: 20161028, end: 20161028
  14. DEXAMETHASONE. [Concomitant]
     Active Substance: DEXAMETHASONE
     Dosage: 2 MILLIGRAM
     Route: 065
     Dates: start: 20161014
  15. LEVETIRACETAM. [Concomitant]
     Active Substance: LEVETIRACETAM
     Dosage: UNK, TWO TIMES A DAY
     Route: 048
     Dates: start: 20160811, end: 20161027
  16. CODEINE [Concomitant]
     Active Substance: CODEINE
     Indication: PREMEDICATION
     Dosage: UNK UNK, TWO TIMES A DAY
     Route: 048
     Dates: start: 20160727, end: 20160810
  17. CODEINE [Concomitant]
     Active Substance: CODEINE
     Indication: CONSTIPATION
     Dosage: SUBSEQUENT DOSE RECEIVED ON 18/NOV/2016
     Route: 048
     Dates: start: 20150506, end: 2016
  18. CODEINE [Concomitant]
     Active Substance: CODEINE
     Dosage: UNK
     Route: 048
     Dates: start: 20161111, end: 2016
  19. SENNA ALEXANDRINA [Concomitant]
     Active Substance: SENNA LEAF
     Indication: CONSTIPATION
     Dosage: UNK
     Route: 048
     Dates: start: 20161221, end: 20170327
  20. KEPPRA [Concomitant]
     Active Substance: LEVETIRACETAM
     Dosage: 250 MILLIGRAM(250 MG, UNK )
     Route: 048
     Dates: start: 20160727, end: 20171027
  21. BECLOMETASONE [Concomitant]
     Active Substance: BECLOMETHASONE DIPROPIONATE
     Indication: WHEEZING
     Dosage: UNK
     Route: 050
     Dates: start: 20160108
  22. EXEMESTANE. [Suspect]
     Active Substance: EXEMESTANE
     Indication: BREAST CANCER METASTATIC
     Dosage: 25 MILLIGRAM, ONCE A DAY
     Route: 048
  23. EXEMESTANE. [Suspect]
     Active Substance: EXEMESTANE
     Dosage: 1 DOSAGE FORM
     Route: 048
     Dates: start: 201607
  24. TAXOTERE [Suspect]
     Active Substance: DOCETAXEL
     Indication: BREAST CANCER METASTATIC
     Dosage: 25 MILLIGRAM, ONCE A DAY
     Route: 048
     Dates: start: 20090921
  25. TAXOTERE [Suspect]
     Active Substance: DOCETAXEL
     Dosage: 100 MILLIGRAM, ONCE A DAY
     Route: 048
     Dates: start: 20160901, end: 20160930
  26. TRASTUZUMAB EMTANSINE [Suspect]
     Active Substance: ADO-TRASTUZUMAB EMTANSINE
     Dosage: 224 MILLIGRAM,3 WEEK
     Route: 042
     Dates: start: 20170620
  27. DEXAMETHASONE. [Concomitant]
     Active Substance: DEXAMETHASONE
     Dosage: 8 MILLIGRAM, ONCE A DAY
     Route: 048
     Dates: start: 20161130, end: 20161201
  28. DEXAMETHASONE. [Concomitant]
     Active Substance: DEXAMETHASONE
     Dosage: 1 DOSAGE FORM, ONCE A DAY
     Route: 048
     Dates: start: 20170216, end: 20170830
  29. CALAMINE [Concomitant]
     Active Substance: CALAMINE\FERRIC OXIDE RED\ZINC OXIDE
     Indication: PRODUCT USED FOR UNKNOWN INDICATION
     Dosage: 1 APPLICATION, AS NEEDED
     Route: 061
     Dates: start: 20150915
  30. LANSOPRAZOLE. [Concomitant]
     Active Substance: LANSOPRAZOLE
     Indication: PROPHYLAXIS
     Dosage: UNK
     Route: 048
     Dates: start: 20150504
  31. CODEINE [Concomitant]
     Active Substance: CODEINE
     Indication: MUSCLE SPASMS
     Dosage: 200 MILLIGRAM
     Route: 048
     Dates: start: 20161123, end: 20171027
  32. CODEINE [Concomitant]
     Active Substance: CODEINE
     Dosage: UNK
     Route: 048
     Dates: start: 20170209, end: 20170216
  33. CODEINE [Concomitant]
     Active Substance: CODEINE
     Dosage: 5 MILLIGRAM, ONCE A DAY
     Route: 048
     Dates: start: 20160308, end: 20160602
  34. METOCLOPRAMIDE. [Concomitant]
     Active Substance: METOCLOPRAMIDE
     Dosage: UNK
     Route: 048
     Dates: start: 20170815, end: 2017
  35. IBUPROFENE [Concomitant]
     Active Substance: IBUPROFEN
     Indication: HEADACHE
     Dosage: 1 DOSAGE FORM, ONCE A DAY(1 TABLET)
     Route: 048
     Dates: start: 20170201
  36. KEPPRA [Concomitant]
     Active Substance: LEVETIRACETAM
     Indication: EPILEPSY
     Dosage: 2 DOSAGE FORM, ONCE A DAY(1 DOSAGE FORM, BID )
     Route: 048
     Dates: start: 20160811, end: 20161027
  37. KEPPRA [Concomitant]
     Active Substance: LEVETIRACETAM
     Indication: MUSCLE TWITCHING
     Dosage: 2 DOSAGE FORM, ONCE A DAY(1 DOSAGE FORM, BID )
     Route: 048
     Dates: start: 20160727, end: 20160810
  38. SPIRONOLACTONE. [Concomitant]
     Active Substance: SPIRONOLACTONE
     Indication: PALPITATIONS
  39. FLUCONAZOLE. [Concomitant]
     Active Substance: FLUCONAZOLE
     Indication: PRODUCT USED FOR UNKNOWN INDICATION
     Dosage: UNK
     Route: 048
     Dates: start: 20171004, end: 20171004
  40. PARACETAMOL [Concomitant]
     Active Substance: ACETAMINOPHEN
     Indication: HEADACHE
     Dosage: UNK
     Route: 048
     Dates: start: 20160629, end: 20171027
  41. VINORELBINE TARTRATE. [Suspect]
     Active Substance: VINORELBINE TARTRATE
     Indication: BREAST CANCER
     Dosage: 100 MILLIGRAM, ONCE A DAY
     Route: 048
     Dates: start: 20160901, end: 20160930
  42. LOSARTAN. [Concomitant]
     Active Substance: LOSARTAN
     Indication: PALPITATIONS
     Dosage: 50 MILLIGRAM
     Route: 048
     Dates: start: 20160602, end: 20171027
  43. DEXAMETHASONE. [Concomitant]
     Active Substance: DEXAMETHASONE
     Dosage: 2 MILLIGRAM
     Route: 065
     Dates: start: 20160713, end: 20161004
  44. APREPITANT. [Concomitant]
     Active Substance: APREPITANT
     Indication: PROPHYLAXIS
     Dosage: UNK
     Route: 065
     Dates: start: 20150527, end: 20150905
  45. CODEINE [Concomitant]
     Active Substance: CODEINE
     Indication: HEADACHE
     Dosage: 2 MILLIGRAM
     Route: 048
     Dates: start: 201612, end: 20170510
  46. CODEINE [Concomitant]
     Active Substance: CODEINE
     Indication: COUGH
     Dosage: UNK
     Route: 048
     Dates: start: 20150508, end: 20150904
  47. CODEINE [Concomitant]
     Active Substance: CODEINE
     Dosage: SUBSEQUENT DOSE RECEIVED ON 18/NOV/2016
     Route: 048
     Dates: start: 20170301, end: 2017
  48. FLUCLOXACILLIN [Concomitant]
     Active Substance: FLUCLOXACILLIN
     Dosage: 750 MILLIGRAM, ONCE A DAY(750 MILLIGRAM, QD )
     Route: 048
  49. ONDANSETRON [Concomitant]
     Active Substance: ONDANSETRON
     Indication: PRODUCT USED FOR UNKNOWN INDICATION
     Dosage: UNK
     Route: 048
     Dates: start: 20150508, end: 20150904
  50. HYDROCORTISONE. [Concomitant]
     Active Substance: HYDROCORTISONE
     Indication: RASH
     Dosage: UNK(LOTION APPLICATION )
     Route: 061
  51. ANASTROZOLE FILM COATED TABLETS [Suspect]
     Active Substance: ANASTROZOLE
     Indication: BREAST CANCER
     Dosage: 1 DOSAGE FORM, ONCE A DAY(1 MG, QD (1/DAY) )
     Route: 048
  52. DEXAMETHASONE. [Concomitant]
     Active Substance: DEXAMETHASONE
     Dosage: 1 DOSAGE FORM, ONCE A DAY
     Route: 048
     Dates: start: 201607, end: 20160921
  53. ACCRETE D3 [Concomitant]
     Active Substance: CALCIUM CARBONATE\CHOLECALCIFEROL
     Indication: PRODUCT USED FOR UNKNOWN INDICATION
     Dosage: UNK
     Route: 048
  54. CODEINE PHOSPHATE [Concomitant]
     Active Substance: CODEINE PHOSPHATE
     Indication: PRODUCT USED FOR UNKNOWN INDICATION
     Dosage: 60 MILLIGRAM (QDS AS NEEDED)
     Route: 048
     Dates: start: 20150603
  55. LEVETIRACETAM. [Concomitant]
     Active Substance: LEVETIRACETAM
     Dosage: UNK, TWO TIMES A DAY
     Route: 048
     Dates: start: 20160727, end: 20160810
  56. PIRITON [Concomitant]
     Active Substance: CHLORPHENIRAMINE MALEATE
     Indication: RASH
     Dosage: 5 MILLIGRAM
     Route: 048
     Dates: start: 20150725
  57. CODEINE [Concomitant]
     Active Substance: CODEINE
     Indication: DIARRHOEA
     Dosage: UNK
     Route: 048
     Dates: start: 20150603, end: 20150715
  58. CODEINE [Concomitant]
     Active Substance: CODEINE
     Dosage: UNK
     Route: 048
     Dates: start: 20161221, end: 20170327
  59. CODEINE [Concomitant]
     Active Substance: CODEINE
     Dosage: 1 DOSAGE FORM, ONCE A DAY
     Route: 048
     Dates: start: 201607, end: 20160921
  60. FLUCLOXACILLIN [Concomitant]
     Active Substance: FLUCLOXACILLIN
     Indication: NAIL INFECTION
     Dosage: 750 MILLIGRAM, 3 TIMES A DAY(250 MILLIGRAM, TID )
     Route: 048
     Dates: start: 20150603, end: 20150610
  61. COCODAMOL [Concomitant]
     Active Substance: ACETAMINOPHEN\CODEINE PHOSPHATE
     Indication: HEADACHE
     Dosage: UNK
     Route: 048
     Dates: start: 20160929, end: 20171027
  62. METOCLOPRAMIDE. [Concomitant]
     Active Substance: METOCLOPRAMIDE
     Indication: PRODUCT USED FOR UNKNOWN INDICATION
     Dosage: UNK(SUBSEQUENT DOSE RECEIVED ON 18/NOV/2016 ) ONCE A DAY
     Route: 048
     Dates: start: 20170301, end: 2017
  63. KEPPRA [Concomitant]
     Active Substance: LEVETIRACETAM
     Dosage: UNK UNK, ONCE A DAY
     Route: 048
     Dates: start: 20160727, end: 20160810
  64. PARACETAMOL [Concomitant]
     Active Substance: ACETAMINOPHEN
     Dosage: UNK
     Route: 058
     Dates: start: 20150506, end: 20150903
  65. ANASTROZOLE FILM COATED TABLETS [Suspect]
     Active Substance: ANASTROZOLE
     Dosage: 1 MILLIGRAM, ONCE A DAY
     Route: 048
     Dates: start: 20151021
  66. EXEMESTANE. [Suspect]
     Active Substance: EXEMESTANE
     Indication: BREAST CANCER
     Dosage: 25 MILLIGRAM, ONCE A DAY
     Route: 048
     Dates: start: 20090921
  67. HERCEPTIN [Suspect]
     Active Substance: TRASTUZUMAB
     Indication: BREAST CANCER METASTATIC
     Dosage: 462 MG LOADING DOSE 3/WEEK (CV)
     Route: 042
     Dates: start: 20150506, end: 20150506
  68. PERJETA [Suspect]
     Active Substance: PERTUZUMAB
     Indication: BREAST CANCER METASTATIC
     Dosage: 840 MILLIGRAM, LOADING DOSE
     Route: 042
     Dates: start: 20150507, end: 20150507
  69. TAXOTERE [Suspect]
     Active Substance: DOCETAXEL
     Dosage: 100 MILLIGRAM, ONCE A DAY
     Route: 048
     Dates: start: 20161111
  70. DEXAMETHASONE. [Concomitant]
     Active Substance: DEXAMETHASONE
     Indication: PREMEDICATION
     Dosage: 8 MILLIGRAM
     Route: 048
     Dates: start: 20150504, end: 20150904
  71. DEXAMETHASONE. [Concomitant]
     Active Substance: DEXAMETHASONE
     Dosage: 1 DOSAGE FORM, ONCE A DAY
     Route: 048
     Dates: start: 20161123, end: 20161130
  72. DEXAMETHASONE. [Concomitant]
     Active Substance: DEXAMETHASONE
     Dosage: 2 MILLIGRAM, ONCE A DAY
     Route: 048
     Dates: start: 201612, end: 20170510
  73. LEVETIRACETAM. [Concomitant]
     Active Substance: LEVETIRACETAM
     Indication: EPILEPSY
     Dosage: 250 MILLIGRAM
     Route: 048
     Dates: start: 20160727, end: 20171027
  74. CORSODYL [Concomitant]
     Active Substance: CHLORHEXIDINE GLUCONATE
     Indication: MUCOSAL INFLAMMATION
     Dosage: 1 MOUTH WASH AS NEEDED
     Route: 048
     Dates: start: 20150514, end: 20150715
  75. CODEINE [Concomitant]
     Active Substance: CODEINE
     Indication: PALPITATIONS
     Dosage: UNK
     Route: 048
     Dates: start: 20160811, end: 20161027
  76. CODEINE [Concomitant]
     Active Substance: CODEINE
     Indication: EPILEPSY
     Dosage: 50 MILLIGRAM
     Route: 048
     Dates: start: 20160602, end: 20171027
  77. CODEINE [Concomitant]
     Active Substance: CODEINE
     Indication: URINARY TRACT INFECTION
     Dosage: 1 DOSAGE FORM, ONCE A DAY
     Route: 048
     Dates: start: 20161123, end: 20161130
  78. CODEINE [Concomitant]
     Active Substance: CODEINE
     Dosage: UNK
     Route: 048
     Dates: start: 20170216, end: 20170830
  79. CODEINE [Concomitant]
     Active Substance: CODEINE
     Dosage: 1 DOSAGE FORM, ONCE A DAY
     Route: 048
     Dates: start: 20161004, end: 20161123
  80. NITROFURANTOIN. [Concomitant]
     Active Substance: NITROFURANTOIN
     Indication: PRODUCT USED FOR UNKNOWN INDICATION
     Dosage: UNK
     Route: 065
     Dates: start: 20170621, end: 20170623
  81. GELCLAIR [Concomitant]
     Indication: PRODUCT USED FOR UNKNOWN INDICATION
     Dosage: UNK
     Route: 065
     Dates: start: 20150514, end: 20150514
  82. SENNA [Concomitant]
     Active Substance: SENNA LEAF\SENNOSIDES\SENNOSIDES A AND B
     Indication: CONSTIPATION
     Dosage: UNK
     Route: 048
     Dates: start: 20161221, end: 20170327
  83. EXEMESTANE. [Suspect]
     Active Substance: EXEMESTANE
     Dosage: 25 MILLIGRAM, ONCE A DAY
     Route: 048
     Dates: start: 20150328
  84. HERCEPTIN [Suspect]
     Active Substance: TRASTUZUMAB
     Dosage: 1071 MILLIGRAM(357 MG, EVERY 3 WEEKS )
     Route: 042
     Dates: start: 20150527
  85. PERJETA [Suspect]
     Active Substance: PERTUZUMAB
     Dosage: 420 MILLIGRAM  2WEEKS
     Route: 042
     Dates: start: 20150527
  86. TAXOTERE [Suspect]
     Active Substance: DOCETAXEL
     Dosage: 25 MILLIGRAM, ONCE A DAY
     Route: 048
     Dates: start: 20151021
  87. TRASTUZUMAB EMTANSINE [Suspect]
     Active Substance: ADO-TRASTUZUMAB EMTANSINE
     Indication: BREAST CANCER METASTATIC
     Dosage: 462 MILLIGRAM FOR EVERY 3 WEEKS
     Route: 042
     Dates: start: 20150506, end: 20150506
  88. TRASTUZUMAB EMTANSINE [Suspect]
     Active Substance: ADO-TRASTUZUMAB EMTANSINE
     Dosage: 1071 MILLIGRAM, EVERY WEEK(1071 MG, QW (357 MG, EVERY 3 WEEKS, LAST DOSE N 30 JUN 2016) )
     Route: 042
     Dates: start: 20150527
  89. VINORELBINE TARTRATE. [Suspect]
     Active Substance: VINORELBINE TARTRATE
     Dosage: 100 MILLIGRAM, ONCE A DAY
     Route: 048
     Dates: start: 20161111
  90. BISOPROLOL [Concomitant]
     Active Substance: BISOPROLOL
     Indication: PALPITATIONS
     Dosage: 1.25 MILLIGRAM
     Route: 048
     Dates: start: 20160602
  91. AMITRIPTYLINE [Concomitant]
     Active Substance: AMITRIPTYLINE
     Indication: PRODUCT USED FOR UNKNOWN INDICATION
     Dosage: 10 MILLIGRAM, ONCE A DAY
     Route: 048
     Dates: start: 201603
  92. CODEINE [Concomitant]
     Active Substance: CODEINE
     Dosage: 1 DOSAGE FORM
     Route: 048
     Dates: start: 20170201
  93. CODEINE [Concomitant]
     Active Substance: CODEINE
     Dosage: 1 DOSAGE FORM, ONCE A DAY
     Route: 048
     Dates: start: 20150506, end: 20150717
  94. RAMIPRIL. [Concomitant]
     Active Substance: RAMIPRIL
     Indication: PALPITATIONS
     Dosage: 5 MILLIGRAM, ONCE A DAY(5 MG, QD (1/DAY) )
     Route: 048
     Dates: start: 20160308, end: 20161005
  95. PEGFILGRASTIM [Concomitant]
     Active Substance: PEGFILGRASTIM
     Indication: PRODUCT USED FOR UNKNOWN INDICATION
     Dosage: UNK
     Route: 058
     Dates: start: 20150506, end: 20150903
  96. VENTOLIN [Concomitant]
     Active Substance: ALBUTEROL SULFATE
     Indication: WHEEZING
     Dosage: UNK
     Route: 065
     Dates: start: 20170621, end: 2017
  97. LACTULOSE. [Concomitant]
     Active Substance: LACTULOSE
     Indication: NEURALGIA
     Dosage: UNK
     Route: 048
     Dates: start: 20161221, end: 20171021
  98. LACTULOSE. [Concomitant]
     Active Substance: LACTULOSE
     Indication: CONSTIPATION
     Dosage: UNK,1 MONTH(MONTHLY )
     Route: 048
     Dates: start: 20170201, end: 201703
  99. METOCLOPRAMIDE. [Concomitant]
     Active Substance: METOCLOPRAMIDE
     Dosage: 2 DOSAGE FORM, ONCE A DAY(2 DOSAGE FORM, QD )
     Route: 048
     Dates: start: 20170301, end: 2017
  100. METOCLOPRAMIDE. [Concomitant]
     Active Substance: METOCLOPRAMIDE
     Dosage: UNK(SUBSEQUENT DOSE RECEIVED ON 18/NOV/2016 )
     Route: 048
     Dates: start: 20150506, end: 2016
  101. BECLOMETASONE [Concomitant]
     Active Substance: BECLOMETHASONE DIPROPIONATE
     Dosage: 400 MILLIGRAM
     Route: 050
     Dates: end: 20160108
  102. EXEMESTANE. [Suspect]
     Active Substance: EXEMESTANE
     Dosage: 25 MILLIGRAM, ONCE A DAY
     Route: 048
     Dates: start: 20151021
  103. TAXOTERE [Suspect]
     Active Substance: DOCETAXEL
     Indication: BREAST CANCER
     Dosage: 25 MILLIGRAM, ONCE A DAY
     Route: 048
     Dates: start: 20150328
  104. TAXOTERE [Suspect]
     Active Substance: DOCETAXEL
     Indication: BREAST CANCER METASTATIC
     Dosage: 130 MILLIGRAM FOR 3 WEEKS
     Route: 042
     Dates: start: 20150507, end: 20150903
  105. TRASTUZUMAB EMTANSINE [Suspect]
     Active Substance: ADO-TRASTUZUMAB EMTANSINE
     Dosage: 357 MILLIGRAM,TWO WEEKS(357 MILLIGRAM, Q3W )
     Route: 042
     Dates: start: 20170620
  106. VINORELBINE TARTRATE. [Suspect]
     Active Substance: VINORELBINE TARTRATE
     Indication: BREAST CANCER METASTATIC
     Dosage: 100 MILLIGRAM, ONCE A DAY
     Route: 048
     Dates: start: 20161028, end: 20161028
  107. XELODA [Suspect]
     Active Substance: CAPECITABINE
     Indication: BREAST CANCER
     Dosage: 3300 MILLIGRAM
     Route: 048
     Dates: start: 20160901, end: 20160914
  108. CYCLIZINE [Concomitant]
     Active Substance: CYCLIZINE
     Indication: PROPHYLAXIS
     Dosage: 50 MILLIGRAM, 3 TIMES A DAY
     Route: 048
     Dates: start: 20150603
  109. DEXAMETHASONE. [Concomitant]
     Active Substance: DEXAMETHASONE
     Dosage: 2 MILLIGRAM, ONCE A DAY
     Route: 048
     Dates: start: 20161004, end: 20161123
  110. DEXAMETHASONE. [Concomitant]
     Active Substance: DEXAMETHASONE
     Dosage: 2 MILLIGRAM
     Route: 065
     Dates: start: 20150504, end: 20150904
  111. DEXAMETHASONE. [Concomitant]
     Active Substance: DEXAMETHASONE
     Dosage: 1 DOSAGE FORM, ONCE A DAY(1 DOSAGE FORM, QD )
     Route: 048
     Dates: start: 20170216, end: 20170830
  112. CODEINE [Concomitant]
     Active Substance: CODEINE
     Dosage: UNK
     Route: 048
     Dates: start: 20160629, end: 20171027
  113. CODEINE [Concomitant]
     Active Substance: CODEINE
     Dosage: 250 MILLIGRAM
     Route: 048
     Dates: start: 20160727, end: 20171027
  114. CODEINE [Concomitant]
     Active Substance: CODEINE
     Dosage: 2 MILLIGRAM
     Route: 048
     Dates: start: 20150504, end: 20150904
  115. CODEINE [Concomitant]
     Active Substance: CODEINE
     Dosage: UNK
     Route: 048
     Dates: start: 20161130, end: 20161201
  116. RAMIPRIL. [Concomitant]
     Active Substance: RAMIPRIL
     Indication: COUGH
     Dosage: 435 MILLIGRAM
     Route: 048
  117. CALCIUM GLUCONATE. [Concomitant]
     Active Substance: CALCIUM GLUCONATE
     Indication: PRODUCT USED FOR UNKNOWN INDICATION
     Dosage: UNK
     Route: 065
     Dates: end: 20170201
  118. ONDANSETRON [Concomitant]
     Active Substance: ONDANSETRON
     Dosage: UNK
     Route: 048
     Dates: start: 20161111, end: 2016
  119. METOCLOPRAMIDE. [Concomitant]
     Active Substance: METOCLOPRAMIDE
     Dosage: 2 DOSAGE FORM, ONCE A DAY(2 DOSAGE FORM, QD, 2 DF, QD (1/DAY) )
     Route: 048
     Dates: start: 20170815, end: 2017
  120. AMOXICILLIN. [Concomitant]
     Active Substance: AMOXICILLIN
     Indication: OROPHARYNGEAL PAIN
     Dosage: 3 DOSAGE FORM, 3 TIMES A DAY
     Route: 048
     Dates: start: 20151104, end: 20151111
  121. AMOXICILLIN. [Concomitant]
     Active Substance: AMOXICILLIN
     Indication: OROPHARYNGEAL PAIN
  122. SPIRONOLACTONE. [Concomitant]
     Active Substance: SPIRONOLACTONE
     Indication: PALPITATIONS
     Dosage: 50 MILLIGRAM
     Route: 048
     Dates: start: 20160602, end: 20171027
  123. TRIMETHOPRIM. [Concomitant]
     Active Substance: TRIMETHOPRIM
     Indication: URINARY TRACT INFECTION
     Dosage: UNK
     Route: 048
     Dates: start: 20170209, end: 20170216
  124. ANASTROZOLE. [Concomitant]
     Active Substance: ANASTROZOLE
     Indication: PRODUCT USED FOR UNKNOWN INDICATION
     Dosage: UNK
     Route: 065

REACTIONS (30)
  - Poor peripheral circulation [Unknown]
  - Nasopharyngitis [Recovered/Resolved]
  - Chest pain [Recovered/Resolved]
  - Vaginal discharge [Recovered/Resolved]
  - Weight decreased [Unknown]
  - Diarrhoea [Recovered/Resolved]
  - Nail disorder [Recovered/Resolved]
  - Fatigue [Not Recovered/Not Resolved]
  - Headache [Recovered/Resolved]
  - Dizziness [Unknown]
  - Mucosal inflammation [Unknown]
  - Left ventricular dysfunction [Not Recovered/Not Resolved]
  - Muscle spasms [Unknown]
  - Alopecia [Unknown]
  - Muscle twitching [Unknown]
  - Neuralgia [Not Recovered/Not Resolved]
  - Seizure [Unknown]
  - Rash [Recovered/Resolved]
  - Depressed mood [Not Recovered/Not Resolved]
  - Oropharyngeal pain [Recovered/Resolved]
  - Neuropathy peripheral [Not Recovered/Not Resolved]
  - Hiccups [Recovered/Resolved]
  - Nausea [Recovered/Resolved]
  - Cough [Recovered/Resolved]
  - Abdominal pain [Unknown]
  - Nail infection [Recovered/Resolved]
  - Lacrimation increased [Not Recovered/Not Resolved]
  - Constipation [Recovered/Resolved]
  - Urinary tract infection [Recovered/Resolved]
  - Palpitations [Not Recovered/Not Resolved]

NARRATIVE: CASE EVENT DATE: 20150508
